FAERS Safety Report 4512152-3 (Version None)
Quarter: 2004Q4

REPORT INFORMATION
  Report Type: 
  Country: None (occurrence: None)
  Receive Date: 20041129
  Receipt Date: 20040805
  Transmission Date: 20050328
  Serious: No
  Sender: FDA-Public Use
  Company Number: US-GLAXOSMITHKLINE-A0521106A

PATIENT
  Age: 85 Year
  Sex: Male

DRUGS (7)
  1. LANOXIN [Suspect]
     Indication: ATRIAL FIBRILLATION
     Dosage: .125MG PER DAY
     Route: 048
     Dates: start: 20040604
  2. COUMADIN [Concomitant]
  3. ATENOLOL [Concomitant]
  4. SIMVASTATIN [Concomitant]
  5. TEMAZEPAM [Concomitant]
  6. NEFAZODONE [Concomitant]
  7. MULTIVITAMIN [Concomitant]

REACTIONS (1)
  - COUGH [None]
